FAERS Safety Report 7679211-8 (Version None)
Quarter: 2011Q3

REPORT INFORMATION
  Report Type: 
  Country: None (occurrence: None)
  Receive Date: 20110812
  Receipt Date: 20110802
  Transmission Date: 20111222
  Serious: Yes (Hospitalization)
  Sender: FDA-Public Use
  Company Number: JP-JNJFOC-20110803336

PATIENT
  Sex: Male

DRUGS (2)
  1. REMICADE [Suspect]
     Route: 042
     Dates: start: 20100218
  2. REMICADE [Suspect]
     Indication: CROHN'S DISEASE
     Dosage: 11TH INFUSION
     Route: 042
     Dates: start: 20110428

REACTIONS (4)
  - INTESTINAL ULCER [None]
  - INFECTIVE SPONDYLITIS [None]
  - SMALL INTESTINAL RESECTION [None]
  - SEPSIS [None]
